FAERS Safety Report 5518356-5 (Version None)
Quarter: 2007Q4

REPORT INFORMATION
  Report Type: 
  Country: None (occurrence: None)
  Receive Date: 20071113
  Receipt Date: 20071113
  Transmission Date: 20080405
  Serious: No
  Sender: FDA-Public Use
  Company Number: None

PATIENT
  Age: 52 Year
  Sex: Female
  Weight: 72 kg

DRUGS (5)
  1. NEUPOGEN [Suspect]
     Indication: NEOPLASM MALIGNANT
     Dosage: 480MCG/0.8ML  QDAY PRN  SQ
     Route: 058
     Dates: start: 20070701, end: 20071113
  2. RITUXAN [Concomitant]
  3. CYTOXAN [Concomitant]
  4. ADRIAMYCIN PFS [Concomitant]
  5. VINCRISTINE [Concomitant]

REACTIONS (1)
  - DYSGEUSIA [None]
